FAERS Safety Report 15661130 (Version 1)
Quarter: 2018Q4

REPORT INFORMATION
  Report Type: Spontaneous
  Country: FR (occurrence: FR)
  Receive Date: 20181127
  Receipt Date: 20181127
  Transmission Date: 20190205
  Serious: Yes (Other)
  Sender: FDA-Public Use
  Company Number: FR-PROVELL PHARMACEUTICALS-2059295

PATIENT
  Age: 54 Year
  Sex: Female
  Weight: 94 kg

DRUGS (1)
  1. EUTHYROX [Suspect]
     Active Substance: LEVOTHYROXINE SODIUM
     Indication: HYPOTHYROIDISM
     Dates: start: 201705

REACTIONS (14)
  - Weight increased [None]
  - Depression [None]
  - Blood thyroid stimulating hormone increased [None]
  - Supraventricular extrasystoles [Not Recovered/Not Resolved]
  - Fatigue [Not Recovered/Not Resolved]
  - Decreased interest [Not Recovered/Not Resolved]
  - Weight decreased [None]
  - Muscle spasms [None]
  - Insomnia [Not Recovered/Not Resolved]
  - Hernial eventration [None]
  - Dyspnoea [Not Recovered/Not Resolved]
  - Psychiatric symptom [None]
  - Middle insomnia [None]
  - Hypotonia [None]

NARRATIVE: CASE EVENT DATE: 2017
